FAERS Safety Report 7568456-3 (Version None)
Quarter: 2011Q2

REPORT INFORMATION
  Report Type: 
  Country: None (occurrence: None)
  Receive Date: 20110623
  Receipt Date: 20110610
  Transmission Date: 20111010
  Serious: Yes (Other)
  Sender: FDA-Public Use
  Company Number: CH-ELI_LILLY_AND_COMPANY-CH201106000807

PATIENT
  Age: 53 Year
  Sex: Female

DRUGS (11)
  1. CYMBALTA [Suspect]
     Dosage: 30 MG, QD
     Route: 048
     Dates: start: 20110405, end: 20110514
  2. MIRTAZAPINE [Concomitant]
     Dosage: 30 MG, QD
     Route: 048
     Dates: start: 20100526, end: 20100601
  3. CYMBALTA [Suspect]
     Dosage: 60 MG, UNKNOWN
     Route: 048
     Dates: start: 20110313, end: 20110404
  4. CYMBALTA [Suspect]
     Dosage: 30 MG, QD
     Route: 048
     Dates: start: 20110313, end: 20110404
  5. MIRTAZAPINE [Concomitant]
     Dosage: 45 MG, QD
     Route: 048
     Dates: start: 20090708, end: 20091029
  6. MIRTAZAPINE [Concomitant]
     Indication: SLEEP DISORDER
     Dosage: 60 MG, QD
     Route: 048
     Dates: start: 20090530, end: 20090707
  7. CYMBALTA [Suspect]
     Indication: DEPRESSION
     Dosage: 60 MG, QD
     Route: 048
     Dates: start: 20090330, end: 20110312
  8. CYMBALTA [Suspect]
     Dosage: 30 MG, QD
     Route: 048
  9. XANAX [Concomitant]
     Indication: ANXIETY
     Dosage: 0.5 MG, QD
     Route: 048
     Dates: start: 20090507, end: 20090607
  10. CYMBALTA [Suspect]
     Dosage: 30 MG, OTHER
     Route: 048
     Dates: start: 20110515
  11. MIRTAZAPINE [Concomitant]
     Dosage: 15 MG, QD
     Route: 048
     Dates: start: 20100602, end: 20100729

REACTIONS (3)
  - LOSS OF CONSCIOUSNESS [None]
  - SENSORY DISTURBANCE [None]
  - DRUG WITHDRAWAL SYNDROME [None]
